FAERS Safety Report 10076469 (Version 3)
Quarter: 2014Q2

REPORT INFORMATION
  Report Type: Spontaneous
  Country: IT (occurrence: IT)
  Receive Date: 20140414
  Receipt Date: 20140421
  Transmission Date: 20141212
  Serious: Yes (Life-Threatening)
  Sender: FDA-Public Use
  Company Number: IT-ASTRAZENECA-2014SE25543

PATIENT
  Age: 18875 Day
  Sex: Male
  Weight: 80 kg

DRUGS (5)
  1. SEROQUEL PROLONG [Suspect]
     Route: 048
     Dates: start: 20140330, end: 20140330
  2. PAROXETINE [Suspect]
     Route: 048
     Dates: start: 20140330, end: 20140330
  3. DELORAZEPAM [Suspect]
     Route: 048
     Dates: start: 20140330, end: 20140330
  4. ETILTOX [Suspect]
     Route: 048
     Dates: start: 20140330, end: 20140330
  5. CARBOLITHIUM [Suspect]
     Route: 048
     Dates: start: 20140330, end: 20140330

REACTIONS (5)
  - Coma [Recovered/Resolved]
  - Respiratory failure [Recovered/Resolved]
  - Suicide attempt [Recovered/Resolved]
  - Drug abuse [Unknown]
  - Intentional self-injury [Recovered/Resolved]
